FAERS Safety Report 18712079 (Version 2)
Quarter: 2021Q1

REPORT INFORMATION
  Report Type: Spontaneous
  Country: US (occurrence: US)
  Receive Date: 20210107
  Receipt Date: 20210112
  Transmission Date: 20210419
  Serious: No
  Sender: FDA-Public Use
  Company Number: US-PFIZER INC-2021000734

PATIENT
  Age: 63 Year
  Sex: Female

DRUGS (2)
  1. IBRANCE [Suspect]
     Active Substance: PALBOCICLIB
     Dosage: 125 MG
     Dates: start: 20201112
  2. NERLYNX [Suspect]
     Active Substance: NERATINIB
     Dosage: UNK

REACTIONS (2)
  - Off label use [Unknown]
  - Diarrhoea [Unknown]
